FAERS Safety Report 5050938-X (Version None)
Quarter: 2006Q3

REPORT INFORMATION
  Report Type: 
  Country: None (occurrence: None)
  Receive Date: 20060710
  Receipt Date: 20060623
  Transmission Date: 20061208
  Serious: Yes (Hospitalization)
  Sender: FDA-Public Use
  Company Number: S06-AUT-02641-01

PATIENT
  Age: 46 Year
  Sex: Female

DRUGS (1)
  1. ESCITALOPRAM OXALATE [Suspect]
     Indication: DEPRESSION
     Dosage: 10 MG QD PO
     Route: 048
     Dates: start: 20051001, end: 20051003

REACTIONS (4)
  - DISORIENTATION [None]
  - HALLUCINATION [None]
  - ILLUSION [None]
  - RESTLESSNESS [None]
